FAERS Safety Report 8060287-3 (Version None)
Quarter: 2012Q1

REPORT INFORMATION
  Report Type: 
  Country: None (occurrence: None)
  Receive Date: 20120120
  Receipt Date: 20111103
  Transmission Date: 20120608
  Serious: No
  Sender: FDA-Public Use
  Company Number: US-NOVEN-11US003550

PATIENT
  Sex: Male

DRUGS (3)
  1. FENTANYL [Suspect]
     Indication: PAIN IN EXTREMITY
     Dosage: 25 UG/HR, PATCH Q 72H
     Dates: start: 20110901, end: 20111101
  2. CODEINE SULFATE [Concomitant]
  3. FENTANYL [Suspect]
     Indication: BACK PAIN
     Dosage: 50 UG/HR, PATCH Q 72 H
     Route: 062
     Dates: start: 20111101

REACTIONS (3)
  - INADEQUATE ANALGESIA [None]
  - FEELING DRUNK [None]
  - SOMNOLENCE [None]
